FAERS Safety Report 4286712-1 (Version None)
Quarter: 2004Q1

REPORT INFORMATION
  Report Type: 
  Country: None (occurrence: None)
  Receive Date: 20040204
  Receipt Date: 20040126
  Transmission Date: 20041129
  Serious: Yes (Hospitalization)
  Sender: FDA-Public Use
  Company Number: 2004193432JP

PATIENT
  Age: 53 Year
  Sex: Male

DRUGS (9)
  1. CAMPTOSAR(ORINOTECAN) SOLUTION, STERILE [Suspect]
     Indication: GASTRIC CANCER
     Dosage: SEE IMAGE
     Route: 041
     Dates: start: 20031202, end: 20031202
  2. CAMPTOSAR(ORINOTECAN) SOLUTION, STERILE [Suspect]
     Indication: GASTRIC CANCER
     Dosage: SEE IMAGE
     Route: 041
     Dates: start: 20031002
  3. CAMPTOSAR(ORINOTECAN) SOLUTION, STERILE [Suspect]
     Indication: GASTRIC CANCER
     Dosage: SEE IMAGE
     Route: 041
     Dates: start: 20031031
  4. TS-1(TEGAFUR, GIMESTAT, OTASTAT POTASSIUM) [Suspect]
     Indication: GASTRIC CANCER
     Dosage: SEE IMAGE
     Route: 048
     Dates: start: 20031031, end: 20031215
  5. TS-1(TEGAFUR, GIMESTAT, OTASTAT POTASSIUM) [Suspect]
     Indication: GASTRIC CANCER
     Dosage: SEE IMAGE
     Route: 048
     Dates: start: 20031002
  6. GASTER [Concomitant]
  7. PLETAL [Concomitant]
  8. LASIX [Concomitant]
  9. ALDACTONE [Concomitant]

REACTIONS (13)
  - ALANINE AMINOTRANSFERASE INCREASED [None]
  - AMMONIA INCREASED [None]
  - ANOREXIA [None]
  - ASPARTATE AMINOTRANSFERASE INCREASED [None]
  - DEPRESSED LEVEL OF CONSCIOUSNESS [None]
  - DISORIENTATION [None]
  - HEPATIC ENCEPHALOPATHY [None]
  - HEPATIC FAILURE [None]
  - HEPATIC FUNCTION ABNORMAL [None]
  - LEUKOPENIA [None]
  - MALAISE [None]
  - NAUSEA [None]
  - THROMBOCYTOPENIA [None]
